FAERS Safety Report 19500545 (Version 1)
Quarter: 2021Q3

REPORT INFORMATION
  Report Type: Spontaneous
  Country: DE (occurrence: DE)
  Receive Date: 20210707
  Receipt Date: 20210707
  Transmission Date: 20211014
  Serious: Yes (Hospitalization)
  Sender: FDA-Public Use
  Company Number: DE-TEVA-2021-DE-1929544

PATIENT
  Age: 74 Year
  Sex: Female

DRUGS (10)
  1. IBUPROFEN. [Suspect]
     Active Substance: IBUPROFEN
     Dosage: 600 MG, IF NECESSARY
     Route: 048
  2. LOSARTAN. [Concomitant]
     Active Substance: LOSARTAN
     Dosage: 2 DOSAGE FORMS DAILY; 50 MG, 2?0?0?0
     Route: 048
  3. GLYCEROLTRINITRAT [Concomitant]
     Active Substance: NITROGLYCERIN
     Dosage: 0.4 MG, IF NECESSARY , SPRAY
     Route: 060
  4. AMLODIPIN [Concomitant]
     Active Substance: AMLODIPINE BESYLATE
     Dosage: 10 MILLIGRAM DAILY;  1?0?1?0
     Route: 048
  5. THYRONAJOD 50 HENNING [Concomitant]
     Dosage: .5 DOSAGE FORMS DAILY; 50 UG, 0.5?0?0?0
     Route: 048
  6. BISOPROLOL [Concomitant]
     Active Substance: BISOPROLOL
     Dosage: 10 MILLIGRAM DAILY;  1?0?1?0
     Route: 048
  7. MIRTAZAPIN [Concomitant]
     Active Substance: MIRTAZAPINE
     Dosage: 15 MILLIGRAM DAILY; 0?0?1?0
     Route: 048
  8. HYDROCHLOROTHIAZID [Concomitant]
     Active Substance: HYDROCHLOROTHIAZIDE
     Dosage: .5 DOSAGE FORMS DAILY; 25 MG, 0.5?0?0?0
     Route: 048
  9. EXFORGE HCT 10MG/160MG/12,5MG [Concomitant]
     Dosage: 1 DOSAGE FORMS DAILY; 10|160|12.5 MG, 1?0?0?0
     Route: 048
  10. METAMIZOL [Concomitant]
     Active Substance: METAMIZOLE SODIUM
     Dosage: 1500 MILLIGRAM DAILY; 1?1?1?0
     Route: 048

REACTIONS (2)
  - Restlessness [Unknown]
  - Burning sensation [Unknown]
